FAERS Safety Report 8710024 (Version 2)
Quarter: 2013Q4

REPORT INFORMATION
  Report Type: Spontaneous
  Country: US (occurrence: US)
  Receive Date: 20120806
  Receipt Date: 20131105
  Transmission Date: 20140711
  Serious: Yes (Hospitalization)
  Sender: FDA-Public Use
  Company Number: US-009507513-1207USA011267

PATIENT
  Age: 77 Year
  Sex: Male

DRUGS (5)
  1. ZOCOR [Suspect]
     Dosage: 40 MG, QD
  2. ACEON [Suspect]
     Dosage: 4 MG, QD
  3. PANTOZOL [Suspect]
     Dosage: 40 MG, QD
  4. CLOPIDOGREL [Suspect]
     Dosage: 75 MG, QD
  5. BISOPROLOL FUMARATE [Suspect]
     Dosage: 1.25 MG, QD

REACTIONS (1)
  - Hepatitis cholestatic [Unknown]
